FAERS Safety Report 21610659 (Version 2)
Quarter: 2023Q1

REPORT INFORMATION
  Report Type: Report from Study
  Country: US (occurrence: US)
  Receive Date: 20221117
  Receipt Date: 20230228
  Transmission Date: 20230418
  Serious: Yes (Other)
  Sender: FDA-Public Use
  Company Number: US-ABBVIE-4199297

PATIENT
  Sex: Female

DRUGS (2)
  1. HUMIRA [Suspect]
     Active Substance: ADALIMUMAB
     Indication: Rheumatoid arthritis
     Route: 058
  2. HUMIRA [Suspect]
     Active Substance: ADALIMUMAB
     Route: 058

REACTIONS (7)
  - Hiatus hernia [Unknown]
  - Hernia [Unknown]
  - Arthralgia [Unknown]
  - Mobility decreased [Unknown]
  - Device loosening [Unknown]
  - Thyroid disorder [Unknown]
  - Cyst [Unknown]

NARRATIVE: CASE EVENT DATE: 20150101
